FAERS Safety Report 25659276 (Version 2)
Quarter: 2025Q3

REPORT INFORMATION
  Report Type: Report from Study
  Country: US (occurrence: US)
  Receive Date: 20250808
  Receipt Date: 20250827
  Transmission Date: 20251021
  Serious: No
  Sender: MERCK SHARP & DOHME LLC
  Company Number: US-009507513-2313851

PATIENT
  Age: 73 Year
  Sex: Female
  Weight: 83 kg

DRUGS (29)
  1. WINREVAIR [Suspect]
     Active Substance: SOTATERCEPT-CSRK
     Indication: Pulmonary arterial hypertension
     Route: 058
     Dates: start: 202407, end: 2025
  2. WINREVAIR [Suspect]
     Active Substance: SOTATERCEPT-CSRK
  3. WINREVAIR [Suspect]
     Active Substance: SOTATERCEPT-CSRK
  4. WINREVAIR [Suspect]
     Active Substance: SOTATERCEPT-CSRK
  5. TYVASO DPI [Suspect]
     Active Substance: TREPROSTINIL
     Indication: Pulmonary arterial hypertension
     Route: 055
     Dates: start: 20240819
  6. TYVASO DPI [Suspect]
     Active Substance: TREPROSTINIL
     Indication: Pulmonary arterial hypertension
     Dosage: 16 ?G, FOUR TIMES A DAY (QID)
     Route: 055
  7. OPSUMIT [Suspect]
     Active Substance: MACITENTAN
     Indication: Product used for unknown indication
     Dates: start: 202504
  8. OPSUMIT [Suspect]
     Active Substance: MACITENTAN
     Indication: Product used for unknown indication
     Dates: end: 202506
  9. CLONIDINE HYDROCHLORIDE [Concomitant]
     Active Substance: CLONIDINE HYDROCHLORIDE
  10. Omega [Concomitant]
  11. FIBER LAX [Concomitant]
     Active Substance: CALCIUM POLYCARBOPHIL
  12. CARVEDILOL [Concomitant]
     Active Substance: CARVEDILOL
  13. ROSUVASTATIN CALCIUM [Concomitant]
     Active Substance: ROSUVASTATIN CALCIUM
  14. HYDROXYZINE HYDROCHLORIDE [Concomitant]
     Active Substance: HYDROXYZINE HYDROCHLORIDE
  15. PROTONIX [Concomitant]
     Active Substance: PANTOPRAZOLE SODIUM
  16. HYDROXYCHLOROQUINE SULFATE [Concomitant]
     Active Substance: HYDROXYCHLOROQUINE SULFATE
  17. LEVOTHYROXINE SODIUM [Concomitant]
     Active Substance: LEVOTHYROXINE SODIUM
  18. HYDROCORTISONE [Concomitant]
     Active Substance: HYDROCORTISONE
  19. TRAZODONE HCL [Concomitant]
     Active Substance: TRAZODONE HYDROCHLORIDE
  20. Acetyl-l-carnitine HCL [Concomitant]
  21. DIETARY SUPPLEMENT [Concomitant]
     Active Substance: DIETARY SUPPLEMENT
  22. HYDRALAZINE HCL [Concomitant]
     Active Substance: HYDRALAZINE HYDROCHLORIDE
  23. ENTRESTO [Concomitant]
     Active Substance: SACUBITRIL\VALSARTAN
  24. TYLENOL [Concomitant]
     Active Substance: ACETAMINOPHEN
  25. PREDNISONE [Concomitant]
     Active Substance: PREDNISONE
  26. MELATONIN [Concomitant]
     Active Substance: MELATONIN
  27. VITAMINS [Concomitant]
     Active Substance: VITAMINS
  28. COREG [Concomitant]
     Active Substance: CARVEDILOL
  29. LORATADINE [Concomitant]
     Active Substance: LORATADINE

REACTIONS (5)
  - Scratch [Unknown]
  - Fear of injection [Unknown]
  - Ulcer [Recovering/Resolving]
  - Drug intolerance [Unknown]
  - Device difficult to use [Unknown]

NARRATIVE: CASE EVENT DATE: 20240701
